FAERS Safety Report 9931308 (Version 1)
Quarter: 2014Q1

REPORT INFORMATION
  Report Type: Spontaneous
  Country: DE (occurrence: DE)
  Receive Date: 20140228
  Receipt Date: 20140228
  Transmission Date: 20141002
  Serious: Yes (Hospitalization)
  Sender: FDA-Public Use
  Company Number: DE-ROCHE-1356933

PATIENT
  Sex: Female

DRUGS (8)
  1. LUCENTIS [Suspect]
     Indication: AGE-RELATED MACULAR DEGENERATION
     Route: 050
     Dates: start: 2007
  2. LUCENTIS [Suspect]
     Dosage: MOST RECENT DOSE
     Route: 050
     Dates: start: 20131101
  3. ENALAPRIL [Concomitant]
     Route: 065
     Dates: start: 2007
  4. JUVENTAL [Concomitant]
     Route: 065
     Dates: start: 201208
  5. L-THYROXIN [Concomitant]
     Route: 065
     Dates: start: 1996
  6. LYRICA [Concomitant]
     Route: 065
     Dates: start: 201211
  7. ASS [Concomitant]
     Route: 065
     Dates: start: 2002
  8. BUSCOPAN [Concomitant]
     Route: 065
     Dates: start: 20121220

REACTIONS (1)
  - Cholelithiasis [Recovered/Resolved]
